FAERS Safety Report 26062001 (Version 1)
Quarter: 2025Q4

REPORT INFORMATION
  Report Type: Spontaneous
  Country: GB (occurrence: GB)
  Receive Date: 20251119
  Receipt Date: 20251119
  Transmission Date: 20260118
  Serious: Yes (Other)
  Sender: TEVA
  Company Number: GB-GSK-GB2025EME139937

PATIENT
  Age: 72 Year
  Sex: Female

DRUGS (3)
  1. CARBOPLATIN [Suspect]
     Active Substance: CARBOPLATIN
     Indication: Product used for unknown indication
     Dosage: UNK
     Route: 065
  2. PACLITAXEL [Suspect]
     Active Substance: PACLITAXEL
     Indication: Product used for unknown indication
     Dosage: UNK
     Route: 065
  3. DOSTARLIMAB [Suspect]
     Active Substance: DOSTARLIMAB
     Indication: Product used for unknown indication
     Dosage: UNK
     Route: 065

REACTIONS (10)
  - Endometrial cancer [Unknown]
  - Ureteral stent insertion [Unknown]
  - Abdominal distension [Unknown]
  - Hydronephrosis [Unknown]
  - Vomiting [Unknown]
  - Gastrointestinal disorder [Recovered/Resolved]
  - Condition aggravated [Unknown]
  - Peritoneal disorder [Unknown]
  - Nausea [Unknown]
  - Ascites [Unknown]

NARRATIVE: CASE EVENT DATE: 20250701
